FAERS Safety Report 4710482-3 (Version None)
Quarter: 2005Q3

REPORT INFORMATION
  Report Type: 
  Country: None (occurrence: None)
  Receive Date: 20050707
  Receipt Date: 20050620
  Transmission Date: 20060218
  Serious: Yes (Other)
  Sender: FDA-Public Use
  Company Number: US_0506119426

PATIENT
  Age: 65 Year
  Sex: Male

DRUGS (1)
  1. CIALIS [Suspect]

REACTIONS (4)
  - DIPLOPIA [None]
  - HEMIANOPIA HETERONYMOUS [None]
  - VIRAL INFECTION [None]
  - VISUAL PATHWAY DISORDER [None]
